FAERS Safety Report 7181085-9 (Version None)
Quarter: 2010Q4

REPORT INFORMATION
  Report Type: 
  Country: None (occurrence: None)
  Receive Date: 20101221
  Receipt Date: 20100417
  Transmission Date: 20110411
  Serious: No
  Sender: FDA-Public Use
  Company Number: US-AMGEN-KDL406793

PATIENT

DRUGS (3)
  1. ENBREL [Suspect]
     Indication: JUVENILE ARTHRITIS
     Dosage: 25 MG, QWK
     Dates: start: 20100201
  2. METHOTREXATE [Concomitant]
     Dosage: 15 MG, QWK
     Dates: start: 20100313
  3. PREDNISONE [Concomitant]
     Dosage: 5 MG, QD

REACTIONS (2)
  - DRUG INEFFECTIVE [None]
  - INCORRECT STORAGE OF DRUG [None]
